FAERS Safety Report 11911890 (Version 1)
Quarter: 2016Q1

REPORT INFORMATION
  Report Type: Spontaneous
  Country: IT (occurrence: IT)
  Receive Date: 20160112
  Receipt Date: 20160112
  Transmission Date: 20160526
  Serious: Yes (Hospitalization)
  Sender: FDA-Public Use
  Company Number: IT-TEVA-624283ISR

PATIENT
  Age: 67 Year
  Sex: Male

DRUGS (4)
  1. PREDNISONE. [Suspect]
     Active Substance: PREDNISONE
     Dosage: TOTAL OF SIX CYCLES OF THERAPY
     Route: 065
     Dates: start: 201006, end: 201010
  2. VINCRISTINE [Suspect]
     Active Substance: VINCRISTINE
     Dosage: TOTAL OF SIX CYCLES OF THERAPY
     Route: 065
     Dates: start: 201006, end: 201010
  3. CYCLOPHOSPHAMIDE. [Suspect]
     Active Substance: CYCLOPHOSPHAMIDE
     Dosage: TOTAL OF SIX CYCLES OF THERAPY
     Route: 065
     Dates: start: 201006, end: 201010
  4. RITUXIMAB [Suspect]
     Active Substance: RITUXIMAB
     Dosage: TOTAL OF SIX CYCLES OF THERAPY
     Route: 065
     Dates: start: 201006, end: 201010

REACTIONS (2)
  - Hepatitis cholestatic [Unknown]
  - Hepatitis C [Unknown]
